FAERS Safety Report 8621653-8 (Version None)
Quarter: 2012Q3

REPORT INFORMATION
  Report Type: 
  Country: None (occurrence: None)
  Receive Date: 20120817
  Receipt Date: 20120817
  Transmission Date: 20120928
  Serious: Yes (Disabling, Other)
  Sender: FDA-Public Use
  Company Number: None

PATIENT
  Age: 10 Year
  Sex: Male
  Weight: 43.0917 kg

DRUGS (1)
  1. OXYBUTYNIN [Suspect]
     Indication: BLADDER DISORDER
     Dosage: 1 DAY PO
     Route: 048
     Dates: start: 20110101, end: 20120816

REACTIONS (1)
  - MEDICATION RESIDUE [None]
